FAERS Safety Report 17102190 (Version 7)
Quarter: 2020Q1

REPORT INFORMATION
  Report Type: Spontaneous
  Country: US (occurrence: US)
  Receive Date: 20191202
  Receipt Date: 20200331
  Transmission Date: 20200409
  Serious: Yes (Hospitalization, Other)
  Sender: FDA-Public Use
  Company Number: US-ACTELION-A-US2019-198636

PATIENT
  Age: 62 Year
  Sex: Male
  Weight: 95.24 kg

DRUGS (12)
  1. OPSUMIT [Suspect]
     Active Substance: MACITENTAN
     Indication: PULMONARY HYPERTENSION
     Dosage: 10 MG, QD
     Route: 048
     Dates: start: 20190919
  2. CYCLOSPORINE. [Concomitant]
     Active Substance: CYCLOSPORINE
     Dosage: 25 MG, BID
     Dates: start: 20190708
  3. MIDODRINE [Concomitant]
     Active Substance: MIDODRINE
     Indication: HYPOTENSION
     Dosage: 5 MG, TID
     Dates: start: 20191210
  4. LEVOTHYROXINE. [Concomitant]
     Active Substance: LEVOTHYROXINE
     Dosage: 137 MCG
     Dates: start: 20171219
  5. ALLOPURINOL. [Concomitant]
     Active Substance: ALLOPURINOL
     Dosage: 200 MG, QD
     Dates: start: 20190202
  6. CYANOCOBALAMIN. [Concomitant]
     Active Substance: CYANOCOBALAMIN
     Dosage: 2 MG, QD
     Dates: start: 20191222
  7. PYRIDOXINE [Concomitant]
     Active Substance: PYRIDOXINE
     Dosage: 25 MG, QD
     Dates: start: 20191222
  8. OXYCODONE [Concomitant]
     Active Substance: OXYCODONE
     Dosage: 5 MG, Q6HRS
     Dates: start: 20200114
  9. FOLIC ACID. [Concomitant]
     Active Substance: FOLIC ACID
     Dosage: 2.5 MG, QD
     Dates: start: 20191222
  10. SILDENAFIL CITRATE. [Concomitant]
     Active Substance: SILDENAFIL CITRATE
     Dosage: 400 MG, TID
     Dates: start: 201902
  11. GABAPENTIN. [Concomitant]
     Active Substance: GABAPENTIN
     Dosage: 100 MG, QHS
     Dates: start: 20190330
  12. ONDANSETRON [Concomitant]
     Active Substance: ONDANSETRON

REACTIONS (20)
  - Pneumonia [Unknown]
  - Feeling abnormal [Unknown]
  - Hypotension [Unknown]
  - Fluid overload [Unknown]
  - Cough [Unknown]
  - Abdominal pain [Not Recovered/Not Resolved]
  - Amylase increased [Recovering/Resolving]
  - Eye infection [Unknown]
  - Liver disorder [Unknown]
  - Vomiting [Unknown]
  - Pancreatitis [Recovering/Resolving]
  - Hospitalisation [Unknown]
  - Liver transplant [Unknown]
  - Chronic kidney disease [Unknown]
  - Dyspnoea [Unknown]
  - Nausea [Unknown]
  - Fall [Unknown]
  - Condition aggravated [Unknown]
  - Abdominal discomfort [Unknown]
  - Dizziness [Unknown]

NARRATIVE: CASE EVENT DATE: 20191223
